FAERS Safety Report 4469174-0 (Version None)
Quarter: 2004Q4

REPORT INFORMATION
  Report Type: 
  Country: None (occurrence: None)
  Receive Date: 20041005
  Receipt Date: 20040922
  Transmission Date: 20050328
  Serious: Yes (Hospitalization, Other)
  Sender: FDA-Public Use
  Company Number: 2004048848

PATIENT
  Sex: Male
  Weight: 72.5755 kg

DRUGS (3)
  1. DILANTIN [Suspect]
     Indication: CONVULSION
     Dosage: (3 IN 1 D)
  2. DIAZEPAM [Suspect]
     Indication: ILL-DEFINED DISORDER
     Dates: start: 20040701, end: 20040701
  3. CELECOXIB (CELECOXIB) [Suspect]
     Indication: ARTHRITIS

REACTIONS (13)
  - ACCIDENT AT WORK [None]
  - ALCOHOLIC [None]
  - CONVULSION [None]
  - FACE INJURY [None]
  - FALL [None]
  - FEELING ABNORMAL [None]
  - HEAD INJURY [None]
  - LACERATION [None]
  - REFUSAL OF TREATMENT BY PATIENT [None]
  - ROAD TRAFFIC ACCIDENT [None]
  - SPEECH DISORDER [None]
  - THERAPY NON-RESPONDER [None]
  - THINKING ABNORMAL [None]
